FAERS Safety Report 5809034-3 (Version None)
Quarter: 2008Q3

REPORT INFORMATION
  Report Type: 
  Country: None (occurrence: None)
  Receive Date: 20080714
  Receipt Date: 20080707
  Transmission Date: 20090109
  Serious: Yes (Hospitalization)
  Sender: FDA-Public Use
  Company Number: FR-BRISTOL-MYERS SQUIBB COMPANY-14254387

PATIENT
  Age: 47 Year
  Sex: Female

DRUGS (2)
  1. ORENCIA [Suspect]
     Indication: RHEUMATOID ARTHRITIS
     Dosage: 1 DOSAGE FORM = 1 DOSE
     Route: 042
     Dates: start: 20071201, end: 20080301
  2. MODOPAR LP [Concomitant]
     Indication: PARKINSON'S DISEASE
     Dosage: 1 DOSAGE FORM = 1 TABLET 1 TABLET IN MORNING AND 1 TABLET IN EVENING

REACTIONS (2)
  - DYSKINESIA [None]
  - FALL [None]
